FAERS Safety Report 17900547 (Version 2)
Quarter: 2023Q1

REPORT INFORMATION
  Report Type: Report from Study
  Country: US (occurrence: US)
  Receive Date: 20200616
  Receipt Date: 20230127
  Transmission Date: 20230417
  Serious: Yes (Other)
  Sender: FDA-Public Use
  Company Number: US-KYOWAKIRIN-2020BKK009766

PATIENT

DRUGS (2)
  1. CRYSVITA [Suspect]
     Active Substance: BUROSUMAB-TWZA
     Indication: Hereditary hypophosphataemic rickets
     Dosage: 30 MG, 1X/2 WEEKS
     Route: 065
  2. CRYSVITA [Suspect]
     Active Substance: BUROSUMAB-TWZA
     Indication: Hereditary hypophosphataemic rickets
     Dosage: 60 MG, 1X/2 WEEKS
     Route: 058
     Dates: start: 20190418

REACTIONS (12)
  - Urethral stenosis [Unknown]
  - Epstein-Barr virus infection [Unknown]
  - White blood cell count increased [Unknown]
  - Anaemia [Unknown]
  - Weight increased [Unknown]
  - Fatigue [Unknown]
  - Vitamin D decreased [Unknown]
  - Blood phosphorus decreased [Unknown]
  - Blood alkaline phosphatase increased [Unknown]
  - Bladder pain [Unknown]
  - Pain in extremity [Unknown]
  - Limb operation [Unknown]

NARRATIVE: CASE EVENT DATE: 20220315
